FAERS Safety Report 14301251 (Version 1)
Quarter: 2017Q4

REPORT INFORMATION
  Report Type: Spontaneous
  Country: US (occurrence: US)
  Receive Date: 20171218
  Receipt Date: 20171218
  Transmission Date: 20180321
  Serious: Yes (Other)
  Sender: FDA-Public Use
  Company Number: None

PATIENT
  Age: 59 Year
  Sex: Male
  Weight: 108 kg

DRUGS (1)
  1. VARUBI [Suspect]
     Active Substance: ROLAPITANT
     Indication: CHEMOTHERAPY
     Route: 042
     Dates: start: 20171213, end: 20171213

REACTIONS (6)
  - Blood pressure increased [None]
  - Chest discomfort [None]
  - Flushing [None]
  - Oxygen saturation decreased [None]
  - Infusion related reaction [None]
  - Muscle tightness [None]

NARRATIVE: CASE EVENT DATE: 20171213
